FAERS Safety Report 8278699-1 (Version None)
Quarter: 2012Q2

REPORT INFORMATION
  Report Type: 
  Country: None (occurrence: None)
  Receive Date: 20120412
  Receipt Date: 20111031
  Transmission Date: 20120825
  Serious: No
  Sender: FDA-Public Use
  Company Number: US-ASTRAZENECA-2011SE04507

PATIENT
  Age: 78 Year
  Sex: Female

DRUGS (2)
  1. NEXIUM [Suspect]
     Route: 048
  2. NEXIUM [Suspect]
     Dosage: SOMETIME TAKES EXTRA 40 MG
     Route: 048

REACTIONS (6)
  - INCORRECT DOSE ADMINISTERED [None]
  - DRUG EFFECT DECREASED [None]
  - DIABETES MELLITUS [None]
  - OSTEOPENIA [None]
  - GASTROOESOPHAGEAL REFLUX DISEASE [None]
  - HEADACHE [None]
